FAERS Safety Report 22382645 (Version 1)
Quarter: 2023Q2

REPORT INFORMATION
  Report Type: Spontaneous
  Country: US (occurrence: US)
  Receive Date: 20230530
  Receipt Date: 20230530
  Transmission Date: 20230721
  Serious: No
  Sender: FDA-Public Use
  Company Number: US-SANOFI-01627764

PATIENT

DRUGS (2)
  1. DUPIXENT [Suspect]
     Active Substance: DUPILUMAB
     Dosage: UNK
  2. JUVEDERM [Concomitant]
     Active Substance: HYALURONIC ACID
     Indication: Skin wrinkling

REACTIONS (1)
  - Periorbital disorder [Unknown]
